FAERS Safety Report 5877734-5 (Version None)
Quarter: 2008Q3

REPORT INFORMATION
  Report Type: 
  Country: None (occurrence: None)
  Receive Date: 20080911
  Receipt Date: 20080902
  Transmission Date: 20090109
  Serious: Yes (Hospitalization)
  Sender: FDA-Public Use
  Company Number: US-AMGEN-QUU270093

PATIENT
  Sex: Male

DRUGS (8)
  1. NEUPOGEN [Suspect]
     Indication: DRUG USE FOR UNKNOWN INDICATION
     Route: 058
     Dates: start: 20080211, end: 20080221
  2. PRAVACHOL [Concomitant]
  3. MULTI-VITAMINS [Concomitant]
  4. FISH OIL [Concomitant]
  5. VITAMIN B-12 [Concomitant]
  6. LOPRESSOR [Concomitant]
  7. TRAMADOL HCL [Concomitant]
  8. LIPITOR [Concomitant]

REACTIONS (1)
  - SPLENOMEGALY [None]
